FAERS Safety Report 24032915 (Version 1)
Quarter: 2024Q3

REPORT INFORMATION
  Report Type: Spontaneous
  Country: US (occurrence: US)
  Receive Date: 20240701
  Receipt Date: 20240701
  Transmission Date: 20241016
  Serious: No
  Sender: JOHNSON AND JOHNSON
  Company Number: US-JNJFOC-20240673854

PATIENT
  Age: 42 Year
  Sex: Female
  Weight: 49 kg

DRUGS (10)
  1. OPSUMIT [Suspect]
     Active Substance: MACITENTAN
     Indication: Pulmonary arterial hypertension
     Route: 048
  2. TREPROSTINIL [Suspect]
     Active Substance: TREPROSTINIL
     Indication: Pulmonary arterial hypertension
     Route: 065
     Dates: start: 20230613, end: 20240618
  3. TREPROSTINIL [Suspect]
     Active Substance: TREPROSTINIL
     Route: 065
     Dates: start: 20230613, end: 20240618
  4. SILDENAFIL [Concomitant]
     Active Substance: SILDENAFIL
  5. AZATHIOPRINE [Concomitant]
     Active Substance: AZATHIOPRINE
  6. ELIQUIS [Concomitant]
     Active Substance: APIXABAN
  7. GABAPENTIN [Concomitant]
     Active Substance: GABAPENTIN
  8. HYDROXYCHLOROQUINE SULFATE [Concomitant]
     Active Substance: HYDROXYCHLOROQUINE SULFATE
  9. TRAMADOL HCL [Concomitant]
     Active Substance: TRAMADOL HYDROCHLORIDE
  10. DIAZEPAM [Concomitant]
     Active Substance: DIAZEPAM

REACTIONS (4)
  - Cough [Unknown]
  - Treatment noncompliance [Unknown]
  - Product use issue [Unknown]
  - Inappropriate schedule of product administration [Unknown]
